FAERS Safety Report 5074922-5 (Version None)
Quarter: 2006Q3

REPORT INFORMATION
  Report Type: 
  Country: None (occurrence: None)
  Receive Date: 20060804
  Receipt Date: 20060725
  Transmission Date: 20061208
  Serious: Yes (Other)
  Sender: FDA-Public Use
  Company Number: 2006091820

PATIENT
  Age: 86 Year
  Sex: Male
  Weight: 100.2449 kg

DRUGS (5)
  1. ZOLOFT [Suspect]
     Dosage: 50 MG, INTERVAL: EVERYDAY
     Dates: start: 20050101
  2. ARICEPT [Concomitant]
  3. AVANDIA [Concomitant]
  4. ACTOS [Concomitant]
  5. ALL OTHER THERAPEUTIC PRODUCTS (ALL OTHER THERAPEUTIC PRODUCTS) [Concomitant]

REACTIONS (5)
  - AGITATION [None]
  - DELUSION [None]
  - DIABETES MELLITUS [None]
  - FEELING ABNORMAL [None]
  - HALLUCINATION [None]
